FAERS Safety Report 16568765 (Version 1)
Quarter: 2019Q3

REPORT INFORMATION
  Report Type: Spontaneous
  Country: DK (occurrence: DK)
  Receive Date: 20190713
  Receipt Date: 20190713
  Transmission Date: 20191004
  Serious: Yes (Hospitalization)
  Sender: FDA-Public Use
  Company Number: DK-TEVA-2019-DK-1075876

PATIENT
  Age: 72 Year
  Sex: Male

DRUGS (4)
  1. TERBINAFIN ^MEDICAL VALLEY^ [Interacting]
     Active Substance: TERBINAFINE HYDROCHLORIDE
     Indication: ONYCHOMYCOSIS
     Dosage: STRENGTH: 250MG
     Route: 048
     Dates: start: 20190120, end: 20190225
  2. HJERTEMAGNYL [ACETYLSALICYLIC ACID\MAGNESIUM OXIDE] [Concomitant]
     Active Substance: ASPIRIN\MAGNESIUM OXIDE
     Indication: ANTICOAGULANT THERAPY
     Dosage: STRENGTH: 75 MG
     Route: 048
     Dates: start: 20131016
  3. METOPROLOL SUCCINATE. [Suspect]
     Active Substance: METOPROLOL SUCCINATE
     Indication: HYPERTENSION
     Dosage: STRENGTH: 100MG AND 25MG
     Route: 048
     Dates: start: 20150509
  4. ATORVASTATIN [Concomitant]
     Active Substance: ATORVASTATIN
     Indication: HYPERCHOLESTEROLAEMIA
     Dosage: STRENGTH: 20 MG
     Route: 048
     Dates: start: 20181215

REACTIONS (3)
  - Arrhythmia supraventricular [Unknown]
  - Drug interaction [Unknown]
  - Chest pain [Unknown]

NARRATIVE: CASE EVENT DATE: 201902
